FAERS Safety Report 13563336 (Version 2)
Quarter: 2017Q2

REPORT INFORMATION
  Report Type: Spontaneous
  Country: JP (occurrence: JP)
  Receive Date: 20170519
  Receipt Date: 20170523
  Transmission Date: 20170830
  Serious: Yes (Other)
  Sender: FDA-Public Use
  Company Number: JP-009507513-1705JPN001410J

PATIENT
  Sex: Male

DRUGS (2)
  1. REBETOL [Suspect]
     Active Substance: RIBAVIRIN
     Dosage: UNK
     Route: 048
     Dates: start: 2017
  2. VIEKIRAX [Concomitant]
     Active Substance: OMBITASVIR\PARITAPREVIR\RITONAVIR
     Dosage: UNK
     Route: 065
     Dates: start: 2017

REACTIONS (2)
  - Renal failure [Recovered/Resolved]
  - Infection [Recovered/Resolved]

NARRATIVE: CASE EVENT DATE: 2017
